FAERS Safety Report 8453598-0 (Version None)
Quarter: 2012Q2

REPORT INFORMATION
  Report Type: 
  Country: None (occurrence: None)
  Receive Date: 20120620
  Receipt Date: 20120614
  Transmission Date: 20120825
  Serious: Yes (Other)
  Sender: FDA-Public Use
  Company Number: PT-MERCK-1206USA02722

PATIENT
  Age: 4 Year
  Sex: Male

DRUGS (1)
  1. SINGULAIR [Suspect]
     Indication: RHINITIS SEASONAL
     Route: 048

REACTIONS (2)
  - SYNCOPE [None]
  - EPISTAXIS [None]
